FAERS Safety Report 8797844 (Version 1)
Quarter: 2012Q4

REPORT INFORMATION
  Report Type: Spontaneous
  Country: US (occurrence: None)
  Receive Date: 20120917
  Receipt Date: 20120917
  Transmission Date: 20130627
  Serious: Yes (Other)
  Sender: FDA-Public Use
  Company Number: None

PATIENT
  Age: 50 Year
  Sex: Female
  Weight: 55.79 kg

DRUGS (1)
  1. CLOPIDIGREL [Suspect]
     Indication: STENT PLACEMENT
     Route: 048

REACTIONS (1)
  - Headache [None]
